FAERS Safety Report 7955604-6 (Version None)
Quarter: 2011Q4

REPORT INFORMATION
  Report Type: 
  Country: None (occurrence: None)
  Receive Date: 20111202
  Receipt Date: 20111128
  Transmission Date: 20120403
  Serious: Yes (Hospitalization)
  Sender: FDA-Public Use
  Company Number: IT-ASTRAZENECA-2011SE71930

PATIENT
  Sex: Male

DRUGS (6)
  1. TENORETIC 100 [Suspect]
     Indication: HYPERTENSION
     Dosage: 2 DOSAGE FORM (50 MG + 12.5 MG) TABLETS
     Route: 048
     Dates: start: 20080101, end: 20110910
  2. ACETYLSALICYLIC ACID SRT [Suspect]
     Indication: THROMBOSIS PROPHYLAXIS
     Route: 048
     Dates: start: 20080101
  3. CARDURA [Concomitant]
     Indication: HYPERTENSION
     Dosage: 4 MG TABLETS
     Route: 048
  4. GLICOREST (GLYBURIDE / METFORMIN) [Concomitant]
     Indication: DIABETES MELLITUS
     Dosage: 5 MG + 500 MG FILM COATED TABLETS
     Route: 048
  5. SPIRIVA [Concomitant]
     Indication: CHRONIC OBSTRUCTIVE PULMONARY DISEASE
     Dosage: 30 CAPSULES OF 18 MCG WITH HANDIHALER DEVICE
     Route: 055
  6. SERETIDE (SALMETEROL XINAFOATE / FLUTICASONE PROPIONATE) [Concomitant]
     Indication: CHRONIC OBSTRUCTIVE PULMONARY DISEASE
     Dosage: 25/125 MCG PRESSURIZED SUSPENSION FOR INHALATION, 1 INHALER OF 120 DOSES
     Route: 055

REACTIONS (2)
  - HYPONATRAEMIA [None]
  - HAEMOPTYSIS [None]
